FAERS Safety Report 17367663 (Version 1)
Quarter: 2020Q1

REPORT INFORMATION
  Report Type: Spontaneous
  Country: US (occurrence: US)
  Receive Date: 20200204
  Receipt Date: 20200204
  Transmission Date: 20200409
  Serious: Yes (Other)
  Sender: FDA-Public Use
  Company Number: US-JNJFOC-20200137095

PATIENT
  Age: 55 Year
  Sex: Female
  Weight: 116.22 kg

DRUGS (1)
  1. REMICADE [Suspect]
     Active Substance: INFLIXIMAB
     Indication: PSORIATIC ARTHROPATHY
     Route: 042

REACTIONS (9)
  - Arthralgia [Unknown]
  - Fall [Recovered/Resolved]
  - Groin pain [Unknown]
  - Concussion [Recovered/Resolved]
  - Pain [Unknown]
  - Pyrexia [Unknown]
  - C-reactive protein increased [Unknown]
  - Knee arthroplasty [Unknown]
  - Blood potassium decreased [Unknown]

NARRATIVE: CASE EVENT DATE: 201311
